FAERS Safety Report 18193925 (Version 1)
Quarter: 2020Q3

REPORT INFORMATION
  Report Type: Spontaneous
  Country: US (occurrence: US)
  Receive Date: 20200825
  Receipt Date: 20200825
  Transmission Date: 20201103
  Serious: No
  Sender: FDA-Public Use
  Company Number: US-ROCHE-2556249

PATIENT
  Age: 62 Year
  Sex: Female

DRUGS (1)
  1. PEGASYS [Suspect]
     Active Substance: PEGINTERFERON ALFA-2A
     Indication: PRODUCT USED FOR UNKNOWN INDICATION
     Dosage: INJ 180 MCG/ML, DOSE: 180
     Route: 058
     Dates: start: 201904

REACTIONS (1)
  - Coccydynia [Unknown]

NARRATIVE: CASE EVENT DATE: 20200218
